FAERS Safety Report 6839022-X (Version None)
Quarter: 2010Q3

REPORT INFORMATION
  Report Type: 
  Country: None (occurrence: None)
  Receive Date: 20100713
  Receipt Date: 20080408
  Transmission Date: 20110219
  Serious: Yes (Other)
  Sender: FDA-Public Use
  Company Number: US-PFIZER INC-2007045241

PATIENT
  Sex: Female
  Weight: 70.3 kg

DRUGS (15)
  1. CHANTIX [Suspect]
     Indication: SMOKING CESSATION THERAPY
     Dosage: DAILY
     Dates: start: 20070101
  2. SYNTHROID [Concomitant]
     Dosage: EVERY MORNING
  3. VITAMINS [Concomitant]
  4. TRIEST [Concomitant]
     Route: 048
  5. ATIVAN [Concomitant]
  6. ACETYLSALICYLIC ACID [Concomitant]
  7. GINKGO BILOBA [Concomitant]
  8. MAGNESIUM [Concomitant]
  9. FISH OIL [Concomitant]
  10. GLUCOSAMINE W/CHONDROITIN SULFATES [Concomitant]
  11. LECITHIN [Concomitant]
  12. CINNAMON [Concomitant]
  13. VITAMIN B-12 [Concomitant]
  14. VITAMIN E [Concomitant]
  15. NICOTINE [Concomitant]

REACTIONS (8)
  - APATHY [None]
  - BLOOD CHOLESTEROL INCREASED [None]
  - CONFUSIONAL STATE [None]
  - DISTURBANCE IN ATTENTION [None]
  - DYSGEUSIA [None]
  - GENERALISED ANXIETY DISORDER [None]
  - MEMORY IMPAIRMENT [None]
  - POST-TRAUMATIC STRESS DISORDER [None]
